FAERS Safety Report 5803537-3 (Version None)
Quarter: 2008Q3

REPORT INFORMATION
  Report Type: 
  Country: None (occurrence: None)
  Receive Date: 20080708
  Receipt Date: 20080626
  Transmission Date: 20090109
  Serious: Yes (Disabling)
  Sender: FDA-Public Use
  Company Number: US-CVT-070182

PATIENT

DRUGS (11)
  1. RANEXA [Suspect]
     Indication: ANGINA PECTORIS
     Dosage: 500 MG, BID
     Route: 048
     Dates: start: 20071026, end: 20071110
  2. DILTIAZEM/00489701/ [Suspect]
     Dosage: UNK, UNK
     Route: 048
     Dates: start: 20071026
  3. NIASPAN [Concomitant]
     Dosage: 500 MG X 2 TABLET, QD HS
     Route: 048
     Dates: start: 20071015
  4. NITROGLYCERIN [Concomitant]
     Dosage: 400 MCG, PRN
     Dates: start: 20071001
  5. PLAVIX [Concomitant]
     Dosage: 75 MG, QD
     Route: 048
     Dates: start: 20071001
  6. PROTONIX/01263201/ [Concomitant]
     Dosage: 40 MG, QD
     Route: 048
     Dates: start: 20070928
  7. TOPROL-XL [Concomitant]
     Dates: start: 20070928, end: 20071025
  8. VESICARE [Concomitant]
     Dosage: 10 MG, UNK
     Dates: start: 20040101, end: 20071028
  9. ZOCOR [Concomitant]
     Dosage: 40 MG, QD HS
     Route: 048
     Dates: start: 20071001
  10. ASPIRIN [Concomitant]
     Dosage: 81 MG, UNK
     Route: 048
  11. OMEGA 3 [Concomitant]
     Route: 048

REACTIONS (3)
  - CONJUNCTIVITIS [None]
  - PUNCTATE KERATITIS [None]
  - VISUAL ACUITY REDUCED [None]
